FAERS Safety Report 18081140 (Version 1)
Quarter: 2020Q3

REPORT INFORMATION
  Report Type: Spontaneous
  Country: DZ (occurrence: DZ)
  Receive Date: 20200728
  Receipt Date: 20200728
  Transmission Date: 20201103
  Serious: Yes (Death, Other)
  Sender: FDA-Public Use
  Company Number: DZ-TEVA-2020-DZ-1807755

PATIENT
  Age: 59 Year
  Sex: Female

DRUGS (6)
  1. RIBOMUSTIN [Suspect]
     Active Substance: BENDAMUSTINE HYDROCHLORIDE
     Indication: HODGKIN^S DISEASE STAGE IV
     Route: 042
     Dates: start: 20200405
  2. VINORELBINE [Concomitant]
     Active Substance: VINORELBINE TARTRATE
     Indication: HODGKIN^S DISEASE STAGE IV
     Route: 065
     Dates: start: 20200405
  3. RIBOMUSTIN [Suspect]
     Active Substance: BENDAMUSTINE HYDROCHLORIDE
     Indication: BREAST CANCER
     Route: 042
     Dates: start: 20200504
  4. GEMCITABINE. [Concomitant]
     Active Substance: GEMCITABINE
     Indication: BREAST CANCER
     Route: 065
     Dates: start: 20200504
  5. VINORELBINE [Concomitant]
     Active Substance: VINORELBINE TARTRATE
     Indication: BREAST CANCER
     Route: 065
     Dates: start: 20200504
  6. GEMCITABINE. [Concomitant]
     Active Substance: GEMCITABINE
     Indication: HODGKIN^S DISEASE STAGE IV
     Route: 065
     Dates: start: 20200405

REACTIONS (2)
  - Toxic skin eruption [Fatal]
  - Product use in unapproved indication [Unknown]
